FAERS Safety Report 21278972 (Version 2)
Quarter: 2022Q3

REPORT INFORMATION
  Report Type: Spontaneous
  Country: CN (occurrence: CN)
  Receive Date: 20220901
  Receipt Date: 20220908
  Transmission Date: 20221027
  Serious: Yes (Life-Threatening, Other)
  Sender: FDA-Public Use
  Company Number: CN-CELGENE-CHN-20220104222

PATIENT
  Age: 68 Year
  Sex: Male
  Weight: 71 kg

DRUGS (9)
  1. AZACITIDINE [Suspect]
     Active Substance: AZACITIDINE
     Indication: Acute myeloid leukaemia refractory
     Dosage: 75 MILLIGRAM/SQ. METER
     Route: 058
     Dates: start: 20211227, end: 20220102
  2. APG-2575 [Suspect]
     Active Substance: APG-2575
     Indication: Acute myeloid leukaemia refractory
     Dosage: FREQUENCY TEXT: 3 DAYS RAMP
     Route: 048
     Dates: start: 20211224
  3. APG-2575 [Suspect]
     Active Substance: APG-2575
     Route: 048
     Dates: start: 20211225
  4. APG-2575 [Suspect]
     Active Substance: APG-2575
     Route: 048
     Dates: start: 20211226
  5. APG-2575 [Suspect]
     Active Substance: APG-2575
     Dosage: 600 MILLIGRAM
     Route: 048
     Dates: start: 20211227, end: 20220105
  6. MEROPENEM [Concomitant]
     Active Substance: MEROPENEM
     Indication: Infection
     Route: 065
     Dates: start: 20220105, end: 20220108
  7. INSULIN NOS [Concomitant]
     Active Substance: INSULIN NOS
     Indication: Type 2 diabetes mellitus
     Route: 065
  8. METFORMIN [Concomitant]
     Active Substance: METFORMIN HYDROCHLORIDE
     Indication: Type 2 diabetes mellitus
     Route: 065
     Dates: start: 20211229, end: 20211230
  9. METOPROLOL TARTRATE [Concomitant]
     Active Substance: METOPROLOL TARTRATE
     Indication: Essential hypertension
     Route: 065

REACTIONS (4)
  - Pneumonia [Recovered/Resolved]
  - Respiratory failure [Recovering/Resolving]
  - Cardiac failure [Recovering/Resolving]
  - Anaemia [Recovering/Resolving]

NARRATIVE: CASE EVENT DATE: 20220108
